FAERS Safety Report 5700922-5 (Version None)
Quarter: 2008Q2

REPORT INFORMATION
  Report Type: 
  Country: None (occurrence: None)
  Receive Date: 20080410
  Receipt Date: 20080404
  Transmission Date: 20081010
  Serious: Yes (Other)
  Sender: FDA-Public Use
  Company Number: B0511421A

PATIENT
  Age: 7 Year
  Sex: Male
  Weight: 24.6 kg

DRUGS (3)
  1. RELENZA [Suspect]
     Indication: INFLUENZA
     Dosage: 10MG PER DAY
     Route: 055
     Dates: start: 20080228, end: 20080228
  2. NAUZELIN [Concomitant]
     Route: 048
     Dates: start: 20080228, end: 20080302
  3. CALONAL [Concomitant]
     Route: 048
     Dates: start: 20080228

REACTIONS (2)
  - ABNORMAL BEHAVIOUR [None]
  - AGITATION [None]
